FAERS Safety Report 18877702 (Version 2)
Quarter: 2021Q1

REPORT INFORMATION
  Report Type: Spontaneous
  Country: PL (occurrence: PL)
  Receive Date: 20210211
  Receipt Date: 20210225
  Transmission Date: 20210420
  Serious: Yes (Other)
  Sender: FDA-Public Use
  Company Number: PL-IPSEN BIOPHARMACEUTICALS, INC.-2021-03238

PATIENT
  Age: 43 Year
  Sex: Female

DRUGS (4)
  1. DYSPORT [Suspect]
     Active Substance: ABOBOTULINUMTOXINA
     Indication: MUSCLE SPASTICITY
     Dosage: 1500 IU
     Route: 065
     Dates: start: 2016, end: 2016
  2. VITAMINS [Concomitant]
     Active Substance: VITAMINS
  3. POLOCARD [Concomitant]
     Active Substance: ASPIRIN
  4. ATORIS [Concomitant]
     Active Substance: ATORVASTATIN CALCIUM

REACTIONS (3)
  - Prescribed overdose [Unknown]
  - Prescribed overdose [Unknown]
  - Hemiparesis [Recovered/Resolved]

NARRATIVE: CASE EVENT DATE: 2020
